FAERS Safety Report 9760024 (Version 1)
Quarter: 2013Q4

REPORT INFORMATION
  Report Type: Spontaneous
  Country: US (occurrence: US)
  Receive Date: 20131216
  Receipt Date: 20131216
  Transmission Date: 20140711
  Serious: No
  Sender: FDA-Public Use
  Company Number: US-BIOGENIDEC-2013BI096387

PATIENT
  Age: 34 Year
  Sex: Female

DRUGS (10)
  1. TECFIDERA [Suspect]
     Indication: MULTIPLE SCLEROSIS
     Route: 048
     Dates: start: 20130911, end: 20130927
  2. AMBIEN [Concomitant]
  3. CO-Q10 [Concomitant]
  4. VITAMIN B12 [Concomitant]
  5. FOLIC ACID [Concomitant]
  6. VIT D [Concomitant]
  7. MECLIZINE [Concomitant]
  8. OMEPRAZOLE [Concomitant]
  9. LOW-OGESTREL [Concomitant]
  10. KLONOPIN [Concomitant]

REACTIONS (1)
  - Dizziness [Not Recovered/Not Resolved]
